FAERS Safety Report 24326369 (Version 2)
Quarter: 2024Q4

REPORT INFORMATION
  Report Type: Spontaneous
  Country: US (occurrence: US)
  Receive Date: 20240917
  Receipt Date: 20241011
  Transmission Date: 20250114
  Serious: Yes (Other)
  Sender: HETERO
  Company Number: US-HETERO-HET2024US03159

PATIENT
  Sex: Female
  Weight: 70.295 kg

DRUGS (1)
  1. MESALAMINE [Suspect]
     Active Substance: MESALAMINE
     Indication: Colitis ulcerative
     Dosage: 4 DOSAGE FORM, QD
     Route: 048
     Dates: end: 20240902

REACTIONS (7)
  - Colitis ulcerative [Unknown]
  - Haemorrhage [Unknown]
  - Chills [Unknown]
  - Unevaluable event [Unknown]
  - Muscle spasms [Unknown]
  - Product residue present [Unknown]
  - Product solubility abnormal [Unknown]
